FAERS Safety Report 24692518 (Version 1)
Quarter: 2024Q4

REPORT INFORMATION
  Report Type: Report from Study
  Country: US (occurrence: US)
  Receive Date: 20241203
  Receipt Date: 20241203
  Transmission Date: 20250114
  Serious: Yes (Hospitalization)
  Sender: MYLAN
  Company Number: US-MYLANLABS-2024M1108197

PATIENT
  Sex: Male

DRUGS (14)
  1. DOXORUBICIN [Suspect]
     Active Substance: DOXORUBICIN
     Indication: Testicular yolk sac tumour
     Dosage: 30 MILLIGRAM/SQ. METER {OVER 15?MINUTES; AS A PART OF ATP REGIMEN}
     Route: 042
  2. DOXORUBICIN [Suspect]
     Active Substance: DOXORUBICIN
     Indication: Choriocarcinoma
  3. DOXORUBICIN [Suspect]
     Active Substance: DOXORUBICIN
     Indication: Testicular embryonal carcinoma
  4. DOXORUBICIN [Suspect]
     Active Substance: DOXORUBICIN
     Indication: Teratoma
  5. CISPLATIN [Suspect]
     Active Substance: CISPLATIN
     Indication: Testicular yolk sac tumour
     Dosage: 30 MILLIGRAM/SQ. METER (OVER 2 HOURS; AS A PART OF ATP REGIMEN)
     Route: 042
  6. CISPLATIN [Suspect]
     Active Substance: CISPLATIN
     Indication: Choriocarcinoma
  7. CISPLATIN [Suspect]
     Active Substance: CISPLATIN
     Indication: Testicular embryonal carcinoma
  8. CISPLATIN [Suspect]
     Active Substance: CISPLATIN
     Indication: Teratoma
  9. CISPLATIN [Suspect]
     Active Substance: CISPLATIN
     Indication: Testicular embryonal carcinoma
  10. CISPLATIN [Suspect]
     Active Substance: CISPLATIN
     Indication: Teratoma
  11. PACLITAXEL [Suspect]
     Active Substance: PACLITAXEL
     Indication: Testicular yolk sac tumour
     Dosage: 100 MILLIGRAM/SQ. METER (OVER 1 HOUR; AS A PART OF ATP REGIMEN)
     Route: 042
  12. PACLITAXEL [Suspect]
     Active Substance: PACLITAXEL
     Indication: Choriocarcinoma
  13. PACLITAXEL [Suspect]
     Active Substance: PACLITAXEL
     Indication: Testicular embryonal carcinoma
  14. PACLITAXEL [Suspect]
     Active Substance: PACLITAXEL
     Indication: Teratoma

REACTIONS (4)
  - Febrile neutropenia [Unknown]
  - Neutropenia [Unknown]
  - Drug ineffective [Unknown]
  - Disease progression [Unknown]
